FAERS Safety Report 24558154 (Version 3)
Quarter: 2024Q4

REPORT INFORMATION
  Report Type: Spontaneous
  Country: JP (occurrence: JP)
  Receive Date: 20241028
  Receipt Date: 20241204
  Transmission Date: 20250115
  Serious: Yes (Hospitalization, Other)
  Sender: JOHNSON AND JOHNSON
  Company Number: JP-JNJFOC-20241064018

PATIENT
  Age: 8 Decade
  Sex: Female

DRUGS (4)
  1. OPSUMIT [Suspect]
     Active Substance: MACITENTAN
     Indication: Portopulmonary hypertension
     Dosage: DOSE UNKNOWN
     Route: 048
     Dates: start: 202410, end: 202410
  2. OPSUMIT [Suspect]
     Active Substance: MACITENTAN
     Indication: Scleroderma
  3. ADCIRCA [Suspect]
     Active Substance: TADALAFIL
     Indication: Portopulmonary hypertension
     Dosage: DOSE UNKNOWN
     Route: 048
     Dates: end: 202410
  4. ADCIRCA [Suspect]
     Active Substance: TADALAFIL
     Indication: Scleroderma

REACTIONS (2)
  - Hospitalisation [Unknown]
  - Pulmonary oedema [Recovered/Resolved]

NARRATIVE: CASE EVENT DATE: 20240101
